FAERS Safety Report 9304539 (Version 2)
Quarter: 2013Q3

REPORT INFORMATION
  Report Type: Spontaneous
  Country: CA (occurrence: CA)
  Receive Date: 20130523
  Receipt Date: 20130801
  Transmission Date: 20140515
  Serious: Yes (Other)
  Sender: FDA-Public Use
  Company Number: CA-AMGEN-CANSP2013035267

PATIENT
  Age: 51 Year
  Sex: Female
  Weight: 76.19 kg

DRUGS (5)
  1. ENBREL [Suspect]
     Indication: PSORIATIC ARTHROPATHY
     Dosage: 50 MG, QWK
     Route: 058
     Dates: start: 201304
  2. INDOCIN /00003801/ [Suspect]
     Dosage: 50 MG, BID
     Route: 048
     Dates: start: 20130508
  3. METHACIN [Concomitant]
     Dosage: 5 MG, BID
  4. TYLENOL                            /00020001/ [Concomitant]
     Dosage: UNK
     Route: 048
  5. PREMARIN [Concomitant]
     Dosage: UNK
     Route: 048

REACTIONS (5)
  - Synovial cyst [Not Recovered/Not Resolved]
  - Headache [Not Recovered/Not Resolved]
  - Muscle spasms [Not Recovered/Not Resolved]
  - Injection site pain [Not Recovered/Not Resolved]
  - Lymphadenopathy [Recovered/Resolved]
